FAERS Safety Report 9103157 (Version 1)
Quarter: 2013Q1

REPORT INFORMATION
  Report Type: Spontaneous
  Country: US (occurrence: US)
  Receive Date: 20130219
  Receipt Date: 20130219
  Transmission Date: 20140127
  Serious: Yes (Hospitalization)
  Sender: FDA-Public Use
  Company Number: US-ELI_LILLY_AND_COMPANY-US201103001697

PATIENT
  Sex: Female

DRUGS (10)
  1. FORTEO [Suspect]
     Indication: OSTEOPOROSIS
     Dosage: 20 UG, QD
     Dates: start: 201101
  2. FORTEO [Suspect]
     Dosage: 20 UG, QD
  3. FORTEO [Suspect]
     Dosage: 20 UG, QD
  4. FORTEO [Suspect]
     Dosage: 20 UG, QD
  5. FORTEO [Suspect]
     Dosage: 20 UG, QD
     Route: 065
  6. DIGOXIN [Concomitant]
     Dosage: UNK
  7. VITAMIN D [Concomitant]
     Dosage: 2000 IU, UNK
  8. VITAMIN D [Concomitant]
     Dosage: 4000 IU, UNK
  9. VITAMIN D [Concomitant]
     Dosage: 6000 IU, QD
  10. VITAMIN D NOS [Concomitant]
     Dosage: 5000 IU, QD
     Route: 048

REACTIONS (9)
  - Spinal column stenosis [Not Recovered/Not Resolved]
  - Injection site erythema [Unknown]
  - Vitamin D decreased [Not Recovered/Not Resolved]
  - Feeling abnormal [Unknown]
  - Anxiety [Unknown]
  - Vitamin D deficiency [Unknown]
  - Urine abnormality [Unknown]
  - Urine odour abnormal [Unknown]
  - Muscle spasms [Unknown]
